FAERS Safety Report 7825519-2 (Version None)
Quarter: 2011Q4

REPORT INFORMATION
  Report Type: 
  Country: None (occurrence: None)
  Receive Date: 20111019
  Receipt Date: 20111006
  Transmission Date: 20120403
  Serious: Yes (Hospitalization)
  Sender: FDA-Public Use
  Company Number: US-BAYER-2011-082623

PATIENT
  Age: 30 Year
  Sex: Female

DRUGS (2)
  1. YAZ [Suspect]
     Dosage: UNK
     Dates: start: 20020101, end: 20031201
  2. YASMIN [Suspect]
     Dosage: UNK
     Dates: start: 20020101, end: 20031201

REACTIONS (1)
  - CHOLECYSTECTOMY [None]
